FAERS Safety Report 22234902 (Version 1)
Quarter: 2023Q2

REPORT INFORMATION
  Report Type: Spontaneous
  Country: US (occurrence: None)
  Receive Date: 20230419
  Receipt Date: 20230419
  Transmission Date: 20230721
  Serious: No
  Sender: FDA-Public Use
  Company Number: None

PATIENT
  Age: 80 Year
  Sex: Female
  Weight: 61.65 kg

DRUGS (2)
  1. PRAVASTATIN SODIUM [Suspect]
     Active Substance: PRAVASTATIN SODIUM
     Dosage: FREQUENCY : DAILY;?
     Route: 048
     Dates: start: 20230418, end: 20230418
  2. PRAVASTATIN [Concomitant]
     Active Substance: PRAVASTATIN
     Dates: start: 20230418, end: 20230418

REACTIONS (3)
  - Glossodynia [None]
  - Flatulence [None]
  - Middle insomnia [None]

NARRATIVE: CASE EVENT DATE: 20230418
